FAERS Safety Report 4321214-5 (Version None)
Quarter: 2004Q1

REPORT INFORMATION
  Report Type: 
  Country: None (occurrence: None)
  Receive Date: 20040323
  Receipt Date: 20040302
  Transmission Date: 20041129
  Serious: Yes (Life-Threatening, Other)
  Sender: FDA-Public Use
  Company Number: PHBS2004JP02998

PATIENT
  Age: 53 Year
  Sex: Male
  Weight: 54 kg

DRUGS (11)
  1. AREDIA [Suspect]
     Indication: SALIVARY GLAND CANCER
     Dosage: 90 MG
     Route: 042
     Dates: start: 20040127, end: 20040210
  2. PINORUBIN [Suspect]
     Indication: SALIVARY GLAND CANCER
     Dosage: 60 MG/D
     Route: 042
     Dates: start: 20040128, end: 20040128
  3. RANDA [Suspect]
     Indication: SALIVARY GLAND CANCER
     Dosage: 60 MG/D
     Route: 042
     Dates: start: 20040129, end: 20040129
  4. CYCLOPHOSPHAMIDE [Suspect]
     Indication: SALIVARY GLAND CANCER
     Dosage: 600 MG/D
     Route: 042
     Dates: start: 20040129, end: 20040129
  5. SOLDEM 1 [Concomitant]
     Route: 042
  6. PHYSIO 70 [Concomitant]
     Route: 042
  7. MAC AMIN [Concomitant]
     Route: 042
  8. FRUCTLACT [Concomitant]
     Route: 042
  9. PRIMPERAN INJ [Concomitant]
     Route: 048
  10. KYTRIL [Concomitant]
     Route: 048
  11. NEUTROGIN [Concomitant]
     Dosage: 100 UG/D
     Route: 042
     Dates: start: 20040210, end: 20040215

REACTIONS (23)
  - ACIDOSIS [None]
  - ACUTE MYOCARDIAL INFARCTION [None]
  - BLOOD ALKALINE PHOSPHATASE INCREASED [None]
  - BLOOD CREATINE PHOSPHOKINASE INCREASED [None]
  - BLOOD CREATININE INCREASED [None]
  - BLOOD GLUCOSE INCREASED [None]
  - BLOOD POTASSIUM INCREASED [None]
  - BLOOD SODIUM DECREASED [None]
  - BLOOD UREA INCREASED [None]
  - CARDIAC FAILURE [None]
  - CREATININE RENAL CLEARANCE DECREASED [None]
  - DYSPNOEA [None]
  - FEELING COLD [None]
  - HAEMATOCRIT DECREASED [None]
  - HAEMATURIA [None]
  - HAEMOGLOBIN DECREASED [None]
  - HYPERVENTILATION [None]
  - OXYGEN SATURATION DECREASED [None]
  - PLATELET COUNT DECREASED [None]
  - RED BLOOD CELL COUNT DECREASED [None]
  - RENAL IMPAIRMENT [None]
  - WHITE BLOOD CELL COUNT DECREASED [None]
  - WHITE BLOOD CELL COUNT INCREASED [None]
